FAERS Safety Report 7980979-1 (Version None)
Quarter: 2011Q4

REPORT INFORMATION
  Report Type: 
  Country: None (occurrence: None)
  Receive Date: 20111215
  Receipt Date: 20111213
  Transmission Date: 20120403
  Serious: No
  Sender: FDA-Public Use
  Company Number: US-BIOGENIDEC-2011BI002866

PATIENT
  Age: 55 Year
  Sex: Female

DRUGS (1)
  1. TYSABRI [Suspect]
     Indication: MULTIPLE SCLEROSIS
     Route: 042
     Dates: start: 20100930

REACTIONS (9)
  - BALANCE DISORDER [None]
  - FATIGUE [None]
  - VISION BLURRED [None]
  - DIPLOPIA [None]
  - MUSCULOSKELETAL STIFFNESS [None]
  - HYPOAESTHESIA [None]
  - PAIN [None]
  - MULTIPLE SCLEROSIS RELAPSE [None]
  - EYE DISORDER [None]
